FAERS Safety Report 4694678-5 (Version None)
Quarter: 2005Q2

REPORT INFORMATION
  Report Type: 
  Country: None (occurrence: None)
  Receive Date: 20050620
  Receipt Date: 20050606
  Transmission Date: 20051028
  Serious: Yes (Hospitalization)
  Sender: FDA-Public Use
  Company Number: FR-GLAXOSMITHKLINE-B0384196A

PATIENT
  Age: 91 Year
  Sex: Male

DRUGS (2)
  1. DEROXAT [Suspect]
     Indication: ILL-DEFINED DISORDER
     Dosage: 20MG PER DAY
     Route: 048
     Dates: start: 20050404, end: 20050423
  2. MEMANTINE [Suspect]
     Indication: ILL-DEFINED DISORDER
     Dosage: 10MG PER DAY
     Route: 048

REACTIONS (7)
  - ANAEMIA MACROCYTIC [None]
  - DYSPNOEA AT REST [None]
  - HAEMOLYTIC ANAEMIA [None]
  - HAPTOGLOBIN DECREASED [None]
  - LYMPHOPENIA [None]
  - OCULAR ICTERUS [None]
  - PALLOR [None]
